FAERS Safety Report 4381793-9 (Version None)
Quarter: 2004Q2

REPORT INFORMATION
  Report Type: 
  Country: None (occurrence: None)
  Receive Date: 20040618
  Receipt Date: 20040610
  Transmission Date: 20050107
  Serious: Yes (Other)
  Sender: FDA-Public Use
  Company Number: 001532

PATIENT
  Age: 43 Year
  Sex: Female
  Weight: 70.3 kg

DRUGS (1)
  1. TRI-SPRINTEC (NORGESTIMATE, ETHINYLESTRADIOL) TABLET [Suspect]
     Indication: MENSTRUATION IRREGULAR
     Dosage: 1.00 TABLET, QD, ORAL
     Route: 048
     Dates: start: 20040327, end: 20040509

REACTIONS (2)
  - CEREBROVASCULAR ACCIDENT [None]
  - TRANSIENT ISCHAEMIC ATTACK [None]
